FAERS Safety Report 23196522 (Version 3)
Quarter: 2024Q2

REPORT INFORMATION
  Report Type: Spontaneous
  Country: FR (occurrence: FR)
  Receive Date: 20231117
  Receipt Date: 20240621
  Transmission Date: 20240716
  Serious: Yes (Hospitalization)
  Sender: FDA-Public Use
  Company Number: FR-JNJFOC-20230715891

PATIENT
  Age: 32 Year
  Sex: Male

DRUGS (7)
  1. AZATHIOPRINE [Suspect]
     Active Substance: AZATHIOPRINE
     Indication: Crohn^s disease
     Dosage: 200 MG, QD
     Route: 065
     Dates: start: 20120923, end: 20171209
  2. MESALAMINE [Suspect]
     Active Substance: MESALAMINE
     Indication: Crohn^s disease
     Dosage: UNK
     Route: 065
     Dates: start: 20140618, end: 20180110
  3. METHOTREXATE [Suspect]
     Active Substance: METHOTREXATE
     Indication: Crohn^s disease
     Dosage: 15 MG, QD
     Route: 065
     Dates: start: 20180409, end: 20180509
  4. PREDNISONE [Suspect]
     Active Substance: PREDNISONE
     Indication: Crohn^s disease
     Dosage: 70 MG, QD
     Route: 065
     Dates: start: 20181209
  5. REMICADE [Suspect]
     Active Substance: INFLIXIMAB
     Dosage: 5 MG/KG
     Route: 042
     Dates: start: 20121025, end: 20181009
  6. REMICADE [Suspect]
     Active Substance: INFLIXIMAB
     Indication: Crohn^s disease
     Dosage: UNK
     Route: 042
     Dates: start: 20121025, end: 20180809
  7. VEDOLIZUMAB [Suspect]
     Active Substance: VEDOLIZUMAB
     Indication: Crohn^s disease
     Dosage: 300 MG, INJECTION (PFT)
     Route: 065
     Dates: start: 20181009, end: 20181209

REACTIONS (3)
  - Basal cell carcinoma [Not Recovered/Not Resolved]
  - Hyperleukocytosis [Recovered/Resolved]
  - Orchitis [Recovering/Resolving]
